FAERS Safety Report 7957327-6 (Version None)
Quarter: 2011Q4

REPORT INFORMATION
  Report Type: 
  Country: None (occurrence: None)
  Receive Date: 20111205
  Receipt Date: 20111021
  Transmission Date: 20120403
  Serious: No
  Sender: FDA-Public Use
  Company Number: US-BAYER-2011-103087

PATIENT
  Age: 72 Year
  Sex: Female
  Weight: 77.098 kg

DRUGS (2)
  1. ALEVE (CAPLET) [Suspect]
     Indication: SLEEP DISORDER
     Dosage: 2 DF, BID
     Route: 048
     Dates: start: 20110401
  2. DICYCLOMINE [Concomitant]

REACTIONS (1)
  - NO ADVERSE EVENT [None]
